FAERS Safety Report 18005005 (Version 1)
Quarter: 2020Q3

REPORT INFORMATION
  Report Type: Spontaneous
  Country: US (occurrence: US)
  Receive Date: 20200709
  Receipt Date: 20200709
  Transmission Date: 20201103
  Serious: Yes (Other)
  Sender: FDA-Public Use
  Company Number: US-AMERICAN REGENT INC-2020001368

PATIENT
  Sex: Male

DRUGS (8)
  1. MIDAZOLAM. [Suspect]
     Active Substance: MIDAZOLAM
     Indication: SEDATIVE THERAPY
     Dosage: 0.06 MG/KG/H
  2. LORAZEPAM. [Suspect]
     Active Substance: LORAZEPAM
     Indication: SEDATIVE THERAPY
     Dosage: 0.6 MILLIGRAM/KILOGRAM, Q6H
     Route: 042
  3. MORPHINE [Suspect]
     Active Substance: MORPHINE
     Dosage: 0.1 MILLIGRAM/KILOGRAM (2 BOLUSES)
  4. MORPHINE [Suspect]
     Active Substance: MORPHINE
     Indication: SEDATIVE THERAPY
     Dosage: 0.09 MG/KG/H
     Route: 042
  5. DEXMEDETOMIDINE HYDROCHLORIDE INJECTION (0517?0995?25) [Suspect]
     Active Substance: DEXMEDETOMIDINE HYDROCHLORIDE
     Indication: SEDATIVE THERAPY
     Dosage: 1 MCG/KG/H
     Route: 042
  6. MIDAZOLAM. [Suspect]
     Active Substance: MIDAZOLAM
     Dosage: 0.1 MILLIGRAM/KILOGRAM (4 BOLUSES)
  7. MORPHINE [Suspect]
     Active Substance: MORPHINE
     Dosage: 0.1 MILLIGRAM/KILOGRAM (10 BOLUSES)
  8. MIDAZOLAM. [Suspect]
     Active Substance: MIDAZOLAM
     Dosage: 0.1 MILLIGRAM/KILOGRAM (18 BOLUSES)

REACTIONS (3)
  - Drug ineffective for unapproved indication [Recovering/Resolving]
  - Delirium [Recovering/Resolving]
  - Product use issue [Unknown]
